FAERS Safety Report 8986081 (Version 2)
Quarter: 2013Q1

REPORT INFORMATION
  Report Type: Spontaneous
  Country: DK (occurrence: None)
  Receive Date: 20121217
  Receipt Date: 20130213
  Transmission Date: 20140127
  Serious: Yes (Hospitalization)
  Sender: FDA-Public Use
  Company Number: 2012MA014092

PATIENT
  Age: 52 Year
  Sex: Female

DRUGS (4)
  1. LEVETIRACETAM EXTENDED-RELEASE [Suspect]
     Route: 048
     Dates: start: 20121015, end: 20121124
  2. MIRTAZAPINE [Concomitant]
  3. KEPPRA [Concomitant]
  4. OLANZAPINE [Concomitant]

REACTIONS (5)
  - Convulsion [None]
  - Feeling abnormal [None]
  - Psychotic disorder [None]
  - Insomnia [None]
  - Activities of daily living impaired [None]
